FAERS Safety Report 14155047 (Version 1)
Quarter: 2017Q4

REPORT INFORMATION
  Report Type: Spontaneous
  Country: BR (occurrence: BR)
  Receive Date: 20171103
  Receipt Date: 20171103
  Transmission Date: 20180321
  Serious: Yes (Death)
  Sender: FDA-Public Use
  Company Number: BR-ROCHE-2016244

PATIENT
  Sex: Female

DRUGS (1)
  1. XELODA [Suspect]
     Active Substance: CAPECITABINE
     Indication: BREAST CANCER METASTATIC
     Dosage: DURING 14 DAYS
     Route: 048

REACTIONS (3)
  - Death [Fatal]
  - Fatigue [Recovered/Resolved]
  - Pain [Recovered/Resolved]
